FAERS Safety Report 17025758 (Version 2)
Quarter: 2020Q1

REPORT INFORMATION
  Report Type: Spontaneous
  Country: US (occurrence: US)
  Receive Date: 20191113
  Receipt Date: 20200117
  Transmission Date: 20200409
  Serious: No
  Sender: FDA-Public Use
  Company Number: US-PFIZER INC-2019487777

PATIENT
  Age: 41 Year
  Sex: Male
  Weight: 105.67 kg

DRUGS (1)
  1. VIAGRA [Suspect]
     Active Substance: SILDENAFIL CITRATE
     Indication: ERECTILE DYSFUNCTION
     Dosage: 100 MG, UNK (EVERY 5 DAY)
     Dates: start: 2001

REACTIONS (1)
  - No adverse event [Not Recovered/Not Resolved]
